FAERS Safety Report 8241927-2 (Version None)
Quarter: 2012Q1

REPORT INFORMATION
  Report Type: 
  Country: None (occurrence: None)
  Receive Date: 20120329
  Receipt Date: 20120321
  Transmission Date: 20120608
  Serious: Yes (Life-Threatening)
  Sender: FDA-Public Use
  Company Number: IT-BRISTOL-MYERS SQUIBB COMPANY-16472151

PATIENT
  Age: 79 Year
  Sex: Female

DRUGS (11)
  1. IBRUPROFEN [Suspect]
     Indication: BACK PAIN
     Dosage: 1DF=1DOSASE UNIT, 600 MG EFFERVESCENT GRANULES
     Route: 048
     Dates: start: 20100410, end: 20100420
  2. OMEPRAZOLE [Concomitant]
     Indication: PROPHYLAXIS
  3. FUROSEMIDE [Concomitant]
     Route: 048
  4. COUMADIN [Suspect]
     Dosage: 1DF=1 DOSAGE UNIT
     Route: 048
     Dates: start: 20000101, end: 20100420
  5. DERMATAN SULFATE [Concomitant]
  6. BISOPROLOL FUMARATE [Concomitant]
     Route: 048
  7. CORDARONE [Concomitant]
     Dosage: TAB
  8. CANDESARTAN CILEXETIL [Concomitant]
     Route: 048
  9. POTASSIUM CHLORIDE [Concomitant]
     Dosage: PROLONGED RELEASE TABLETS
  10. LORAZEPAM [Concomitant]
     Dosage: TAB
     Route: 002
  11. CANDESARTAN CILEXETIL [Concomitant]

REACTIONS (3)
  - ANAEMIA [None]
  - HYPOCOAGULABLE STATE [None]
  - GASTROINTESTINAL HAEMORRHAGE [None]
